FAERS Safety Report 8959729 (Version 2)
Quarter: 2012Q4

REPORT INFORMATION
  Report Type: Report from Study
  Country: JP (occurrence: JP)
  Receive Date: 20121212
  Receipt Date: 20121219
  Transmission Date: 20130627
  Serious: Yes (Hospitalization)
  Sender: FDA-Public Use
  Company Number: JP-VERTEX PHARMACEUTICALS INC.-2012-025917

PATIENT
  Age: 69 Year
  Sex: Male

DRUGS (9)
  1. VX-950 (TELAPREVIR) [Suspect]
     Indication: CHRONIC HEPATITIS C
     Dosage: 1500 mg, qd
     Route: 048
     Dates: start: 20120907, end: 20121127
  2. REBETOL [Suspect]
     Indication: CHRONIC HEPATITIS C
     Dosage: 600 mg, qd
     Route: 048
     Dates: start: 20120907, end: 20121025
  3. REBETOL [Suspect]
     Dosage: 200 mg, qd
     Route: 048
     Dates: start: 20121026, end: 20121128
  4. REBETOL [Suspect]
     Dosage: UNK
     Route: 048
     Dates: start: 20121203
  5. PEGINTERFERON ALFA-2B [Suspect]
     Indication: CHRONIC HEPATITIS C
     Dosage: 1.4 ?g/kg, qw
     Route: 058
     Dates: start: 20120907, end: 20121122
  6. PEGINTERFERON ALFA-2B [Suspect]
     Dosage: UNK
  7. ALOSITOL [Concomitant]
     Dosage: 100 mg, qd
     Route: 048
  8. OMEPRAL /00661201/ [Concomitant]
     Dosage: 10 mg, qd
     Route: 048
     Dates: end: 20121018
  9. NEXIUM                             /01479302/ [Concomitant]
     Dosage: 20 mg, qd
     Route: 048
     Dates: start: 20121019

REACTIONS (2)
  - Pancreatitis acute [Recovered/Resolved]
  - Pancreatitis [Recovered/Resolved]
